FAERS Safety Report 17225228 (Version 1)
Quarter: 2020Q1

REPORT INFORMATION
  Report Type: Spontaneous
  Country: TR (occurrence: TR)
  Receive Date: 20200102
  Receipt Date: 20200102
  Transmission Date: 20200409
  Serious: Yes (Other)
  Sender: FDA-Public Use
  Company Number: TR-JNJFOC-20191239858

PATIENT
  Age: 82 Year
  Sex: Female

DRUGS (6)
  1. TEBOKAN [Concomitant]
     Active Substance: GINKGO
     Indication: DYSMORPHISM
     Route: 065
  2. ASPRIN [Concomitant]
     Active Substance: ASPIRIN
     Indication: PRODUCT USED FOR UNKNOWN INDICATION
  3. NOOTROPIL [Concomitant]
     Active Substance: PIRACETAM
     Indication: DYSMORPHISM
     Route: 065
  4. FERPLEX FOL [Concomitant]
     Indication: IRON DEFICIENCY
     Route: 065
  5. RISPERDAL [Suspect]
     Active Substance: RISPERIDONE
     Indication: ANXIETY
  6. RISPERDAL [Suspect]
     Active Substance: RISPERIDONE
     Indication: FEAR
     Dosage: RISPERDAL RECEIVED: NIGHT BEFORE BED.
     Route: 048
     Dates: start: 20191220, end: 20191221

REACTIONS (5)
  - Speech disorder [Recovered/Resolved]
  - Product use in unapproved indication [Unknown]
  - General physical health deterioration [Recovered/Resolved]
  - Hallucinations, mixed [Recovered/Resolved]
  - Off label use [Unknown]

NARRATIVE: CASE EVENT DATE: 20191220
